FAERS Safety Report 5183349-7 (Version None)
Quarter: 2006Q4

REPORT INFORMATION
  Report Type: 
  Country: None (occurrence: None)
  Receive Date: 20061220
  Receipt Date: 20060104
  Transmission Date: 20070319
  Serious: Yes (Other)
  Sender: FDA-Public Use
  Company Number: US-GLAXOSMITHKLINE-A0588469A

PATIENT
  Age: 47 Year
  Sex: Female

DRUGS (1)
  1. NICODERM CQ [Suspect]
     Dosage: 14MG UNKNOWN
     Dates: start: 20050101

REACTIONS (1)
  - DRUG ABUSER [None]
